FAERS Safety Report 5664355-2 (Version None)
Quarter: 2008Q1

REPORT INFORMATION
  Report Type: 
  Country: None (occurrence: None)
  Receive Date: 20080314
  Receipt Date: 20080303
  Transmission Date: 20080703
  Serious: Yes (Other)
  Sender: FDA-Public Use
  Company Number: ES-WYE-H03077608

PATIENT
  Age: 78 Year
  Sex: Female

DRUGS (1)
  1. TRANGOREX [Suspect]
     Indication: ATRIAL FIBRILLATION
     Route: 048
     Dates: start: 20061001, end: 20071001

REACTIONS (3)
  - MENTAL IMPAIRMENT [None]
  - PARKINSONISM [None]
  - VOMITING [None]
